FAERS Safety Report 8325192-3 (Version None)
Quarter: 2012Q2

REPORT INFORMATION
  Report Type: 
  Country: None (occurrence: None)
  Receive Date: 20120501
  Receipt Date: 20120426
  Transmission Date: 20120825
  Serious: Yes (Hospitalization)
  Sender: FDA-Public Use
  Company Number: SE-ROCHE-1000218

PATIENT
  Age: 72 Year
  Sex: Female
  Weight: 78 kg

DRUGS (2)
  1. VEMURAFENIB [Suspect]
     Indication: METASTATIC MALIGNANT MELANOMA
     Dosage: DATE OF LAST DOSE PRIOR TO EVENT: 11/SEP/2012
     Route: 048
     Dates: start: 20110729, end: 20110913
  2. VEMURAFENIB [Suspect]
     Route: 048
     Dates: start: 20111012

REACTIONS (1)
  - PULMONARY EMBOLISM [None]
